FAERS Safety Report 9531170 (Version 3)
Quarter: 2014Q2

REPORT INFORMATION
  Report Type: Spontaneous
  Country: GB (occurrence: GB)
  Receive Date: 20130918
  Receipt Date: 20140506
  Transmission Date: 20141212
  Serious: Yes (Death)
  Sender: FDA-Public Use
  Company Number: PHFR2013GB005268

PATIENT
  Age: 34 Year
  Sex: Male

DRUGS (4)
  1. CLOZARIL [Suspect]
     Indication: SCHIZOPHRENIA
     Dosage: UNK
     Dates: start: 20050818
  2. CLOZARIL [Suspect]
     Dosage: 400 MG, DAILY
  3. VENLAFAXINE [Suspect]
     Dosage: 150 MG DAILY
  4. AMISULPRIDE [Suspect]
     Dosage: UNK UKN, UNK

REACTIONS (2)
  - Toxicity to various agents [Fatal]
  - Cardiac arrest [Fatal]
